FAERS Safety Report 17045803 (Version 4)
Quarter: 2020Q3

REPORT INFORMATION
  Report Type: Spontaneous
  Country: US (occurrence: US)
  Receive Date: 20191118
  Receipt Date: 20200720
  Transmission Date: 20201102
  Serious: No
  Sender: FDA-Public Use
  Company Number: US-CELGENEUS-USA-20191103780

PATIENT
  Age: 64 Year
  Sex: Female

DRUGS (6)
  1. POMALYST [Suspect]
     Active Substance: POMALIDOMIDE
     Dosage: 2 MILLIGRAM
     Route: 048
     Dates: start: 202001
  2. POMALYST [Suspect]
     Active Substance: POMALIDOMIDE
     Indication: PLASMA CELL MYELOMA
     Dosage: 4 MILLIGRAM
     Route: 048
     Dates: start: 201904
  3. POMALYST [Suspect]
     Active Substance: POMALIDOMIDE
     Dosage: 2 MILLIGRAM
     Route: 048
     Dates: start: 202004
  4. NINLARO [Suspect]
     Active Substance: IXAZOMIB CITRATE
     Indication: PRODUCT USED FOR UNKNOWN INDICATION
     Route: 065
  5. POMALYST [Suspect]
     Active Substance: POMALIDOMIDE
     Dosage: 2 MILLIGRAM
     Route: 048
     Dates: start: 20200430, end: 2020
  6. POMALYST [Suspect]
     Active Substance: POMALIDOMIDE
     Dosage: 4 MILLIGRAM
     Route: 048
     Dates: start: 202002

REACTIONS (19)
  - Eye pruritus [Unknown]
  - Pain [Unknown]
  - Dizziness [Unknown]
  - Lacrimation increased [Unknown]
  - Blood cholesterol increased [Unknown]
  - Rash [Not Recovered/Not Resolved]
  - Dyspnoea [Unknown]
  - Pain in extremity [Unknown]
  - Nausea [Unknown]
  - Skin reaction [Unknown]
  - Vertigo [Unknown]
  - Paraesthesia [Not Recovered/Not Resolved]
  - Back pain [Unknown]
  - Visual impairment [Unknown]
  - Peripheral swelling [Unknown]
  - Feeling abnormal [Unknown]
  - Dry eye [Unknown]
  - Abdominal distension [Unknown]
  - Muscle spasms [Unknown]

NARRATIVE: CASE EVENT DATE: 201904
